FAERS Safety Report 5219508-4 (Version None)
Quarter: 2007Q1

REPORT INFORMATION
  Report Type: 
  Country: None (occurrence: None)
  Receive Date: 20070125
  Receipt Date: 20070115
  Transmission Date: 20070707
  Serious: Yes (Other)
  Sender: FDA-Public Use
  Company Number: DE-ELI_LILLY_AND_COMPANY-DE200701002842

PATIENT
  Age: 72 Year
  Sex: Female

DRUGS (3)
  1. YENTREVE [Suspect]
     Dosage: 20 MG, DAILY (1/D)
     Route: 048
  2. CONCOR [Concomitant]
     Dosage: 5 MG, UNK
  3. PENTAERYTHRITOL TETRANITRATE [Concomitant]
     Dosage: 80 MG, UNK

REACTIONS (7)
  - BLOOD PRESSURE INCREASED [None]
  - BURNING SENSATION [None]
  - CARDIAC DISORDER [None]
  - FEELING HOT [None]
  - HEADACHE [None]
  - PAIN [None]
  - TREMOR [None]
